FAERS Safety Report 9696795 (Version 3)
Quarter: 2015Q3

REPORT INFORMATION
  Report Type: Spontaneous
  Country: US (occurrence: US)
  Receive Date: 20131119
  Receipt Date: 20150803
  Transmission Date: 20151125
  Serious: No
  Sender: FDA-Public Use
  Company Number: US-GILEAD-2007-0014617

PATIENT
  Sex: Female
  Weight: 88.9 kg

DRUGS (17)
  1. LASIX [Concomitant]
     Active Substance: FUROSEMIDE
     Route: 048
  2. GLUCOPHAGE [Concomitant]
     Active Substance: METFORMIN HYDROCHLORIDE
     Route: 048
  3. VENTOLIN [Concomitant]
     Active Substance: ALBUTEROL SULFATE
     Route: 055
  4. LEXAPRO [Concomitant]
     Active Substance: ESCITALOPRAM OXALATE
     Route: 048
  5. KLOR-CON [Concomitant]
     Active Substance: POTASSIUM CHLORIDE
     Route: 048
  6. IPRATROPIUM [Concomitant]
     Active Substance: IPRATROPIUM
     Route: 055
  7. OXYGEN. [Concomitant]
     Active Substance: OXYGEN
     Dosage: CONTINUOUS
     Route: 045
  8. ACIPHEX [Concomitant]
     Active Substance: RABEPRAZOLE SODIUM
     Route: 048
  9. NOVOLIN 70/30 [Concomitant]
     Active Substance: INSULIN HUMAN
     Route: 058
  10. ELAVIL [Concomitant]
     Active Substance: AMITRIPTYLINE HYDROCHLORIDE
     Route: 048
  11. MOTRIN IB [Concomitant]
     Active Substance: IBUPROFEN
     Route: 048
  12. SINGULAIR [Concomitant]
     Active Substance: MONTELUKAST SODIUM
     Dosage: QPM
     Route: 048
  13. LETAIRIS [Suspect]
     Active Substance: AMBRISENTAN
     Indication: PULMONARY ARTERIAL HYPERTENSION
     Route: 048
     Dates: start: 20071113
  14. LANTUS [Concomitant]
     Active Substance: INSULIN GLARGINE
     Route: 058
  15. LISINOPRIL. [Concomitant]
     Active Substance: LISINOPRIL
     Route: 048
  16. PULMICORT TURBUHALER [Concomitant]
     Active Substance: BUDESONIDE
     Route: 055
  17. REVATIO [Concomitant]
     Active Substance: SILDENAFIL CITRATE
     Route: 048

REACTIONS (3)
  - Palpitations [Not Recovered/Not Resolved]
  - Heart rate increased [Not Recovered/Not Resolved]
  - Chest discomfort [Not Recovered/Not Resolved]
